FAERS Safety Report 4350287-9 (Version None)
Quarter: 2004Q2

REPORT INFORMATION
  Report Type: 
  Country: None (occurrence: None)
  Receive Date: 20040429
  Receipt Date: 20040420
  Transmission Date: 20050107
  Serious: Yes (Other)
  Sender: FDA-Public Use
  Company Number: AU-MERCK-0404AUS00066

PATIENT
  Age: 73 Year

DRUGS (1)
  1. FOSAMAX [Suspect]
     Route: 048
     Dates: start: 20020701, end: 20021201

REACTIONS (3)
  - HYPOPYON [None]
  - UVEITIS [None]
  - VISUAL DISTURBANCE [None]
